FAERS Safety Report 10143914 (Version 3)
Quarter: 2014Q3

REPORT INFORMATION
  Report Type: Spontaneous
  Country: US (occurrence: US)
  Receive Date: 20140430
  Receipt Date: 20140808
  Transmission Date: 20150326
  Serious: Yes (Hospitalization)
  Sender: FDA-Public Use
  Company Number: US-BAYER-2014-063492

PATIENT
  Age: 49 Year
  Sex: Female
  Weight: 82.99 kg

DRUGS (1)
  1. YAZ [Suspect]
     Active Substance: DROSPIRENONE\ETHINYL ESTRADIOL
     Indication: CONTRACEPTION
     Dosage: UNK
     Dates: start: 20081231, end: 20100426

REACTIONS (3)
  - Pulmonary embolism [Recovered/Resolved]
  - Injury [Recovered/Resolved]
  - Deep vein thrombosis [Recovered/Resolved]

NARRATIVE: CASE EVENT DATE: 20100429
